FAERS Safety Report 15682412 (Version 2)
Quarter: 2020Q3

REPORT INFORMATION
  Report Type: Spontaneous
  Country: JP (occurrence: JP)
  Receive Date: 20181203
  Receipt Date: 20200806
  Transmission Date: 20201102
  Serious: Yes (Other)
  Sender: FDA-Public Use
  Company Number: JP-PFIZER INC-2018071594

PATIENT
  Age: 83 Year
  Sex: Female

DRUGS (5)
  1. VALSARTAN. [Concomitant]
     Active Substance: VALSARTAN
  2. WYPAX 0.5 [Suspect]
     Active Substance: LORAZEPAM
     Indication: ANXIETY DISORDER
     Dosage: (0.25 MG OR 0.125 MG), 2X/DAY
     Route: 048
     Dates: start: 2007, end: 20180202
  3. ELDECALCITOL [Concomitant]
     Active Substance: ELDECALCITOL
  4. ALENDRONIC ACID [Concomitant]
     Active Substance: ALENDRONIC ACID
  5. EVAMYL [Suspect]
     Active Substance: LORMETAZEPAM
     Indication: ANXIETY DISORDER
     Dosage: 0.5 MG, 1X/DAY
     Route: 048
     Dates: start: 2007, end: 20180212

REACTIONS (5)
  - Labile blood pressure [Recovering/Resolving]
  - Hypertension [Recovering/Resolving]
  - Blood pressure increased [Recovering/Resolving]
  - Drug withdrawal syndrome [Unknown]
  - Atrial fibrillation [Recovering/Resolving]

NARRATIVE: CASE EVENT DATE: 201711
